FAERS Safety Report 14334684 (Version 3)
Quarter: 2020Q1

REPORT INFORMATION
  Report Type: Spontaneous
  Country: JP (occurrence: JP)
  Receive Date: 20171228
  Receipt Date: 20200228
  Transmission Date: 20200409
  Serious: Yes (Other)
  Sender: FDA-Public Use
  Company Number: JP-AMGEN-JPNSP2017191900

PATIENT
  Age: 8 Decade
  Sex: Female

DRUGS (21)
  1. VECTIBIX [Suspect]
     Active Substance: PANITUMUMAB
     Dosage: UNK
     Route: 050
     Dates: start: 201707, end: 2017
  2. CALCIUM LEVOFOLINATE [Suspect]
     Active Substance: LEVOLEUCOVORIN CALCIUM
     Indication: COLON CANCER
     Dosage: 250 MILLIGRAM
     Route: 065
  3. VECTIBIX [Suspect]
     Active Substance: PANITUMUMAB
     Dosage: UNK
     Route: 050
     Dates: start: 201809
  4. CALCIUM LEVOFOLINATE [Suspect]
     Active Substance: LEVOLEUCOVORIN CALCIUM
     Dosage: UNK
     Route: 065
     Dates: start: 201502, end: 2015
  5. CALCIUM LEVOFOLINATE [Suspect]
     Active Substance: LEVOLEUCOVORIN CALCIUM
     Dosage: 250 MILLIGRAM
     Route: 065
     Dates: start: 201310
  6. VECTIBIX [Suspect]
     Active Substance: PANITUMUMAB
     Dosage: 300 MILLIGRAM
     Route: 050
     Dates: start: 201310
  7. VECTIBIX [Suspect]
     Active Substance: PANITUMUMAB
     Dosage: UNK
     Route: 050
     Dates: start: 201801, end: 2018
  8. FLUOROURACIL. [Suspect]
     Active Substance: FLUOROURACIL
     Indication: COLON CANCER
     Dosage: 2600 MILLIGRAM
     Route: 065
  9. FLUOROURACIL. [Suspect]
     Active Substance: FLUOROURACIL
     Dosage: UNK
     Route: 065
     Dates: start: 201509, end: 201511
  10. VECTIBIX [Suspect]
     Active Substance: PANITUMUMAB
     Dosage: UNK
     Route: 050
     Dates: start: 201509, end: 201511
  11. IRINOTECAN HYDROCHLORIDE. [Suspect]
     Active Substance: IRINOTECAN HYDROCHLORIDE
     Dosage: 200 MILLIGRAM
     Route: 065
     Dates: start: 201310
  12. VECTIBIX [Suspect]
     Active Substance: PANITUMUMAB
     Indication: COLON CANCER
     Dosage: 300 MILLIGRAM
     Route: 050
  13. VECTIBIX [Suspect]
     Active Substance: PANITUMUMAB
     Dosage: UNK
     Route: 050
     Dates: start: 201603, end: 201606
  14. VECTIBIX [Suspect]
     Active Substance: PANITUMUMAB
     Dosage: UNK
     Route: 050
     Dates: start: 201502, end: 2015
  15. IRINOTECAN HYDROCHLORIDE. [Suspect]
     Active Substance: IRINOTECAN HYDROCHLORIDE
     Indication: COLON CANCER
     Dosage: 200 MILLIGRAM
     Route: 065
  16. IRINOTECAN HYDROCHLORIDE. [Suspect]
     Active Substance: IRINOTECAN HYDROCHLORIDE
     Dosage: UNK
     Route: 065
     Dates: start: 201502, end: 2015
  17. IRINOTECAN HYDROCHLORIDE. [Suspect]
     Active Substance: IRINOTECAN HYDROCHLORIDE
     Dosage: UNK
     Route: 065
     Dates: start: 201509, end: 201511
  18. FLUOROURACIL. [Suspect]
     Active Substance: FLUOROURACIL
     Dosage: 2600 MILLIGRAM
     Route: 065
     Dates: start: 201310
  19. VECTIBIX [Suspect]
     Active Substance: PANITUMUMAB
     Dosage: UNK
     Route: 050
     Dates: start: 201610, end: 2017
  20. FLUOROURACIL. [Suspect]
     Active Substance: FLUOROURACIL
     Dosage: UNK
     Route: 065
     Dates: start: 201502, end: 2015
  21. CALCIUM LEVOFOLINATE [Suspect]
     Active Substance: LEVOLEUCOVORIN CALCIUM
     Dosage: UNK
     Route: 065
     Dates: start: 201509, end: 201511

REACTIONS (6)
  - Brachiocephalic vein occlusion [Unknown]
  - Deep vein thrombosis [Unknown]
  - Cutaneous symptom [Recovering/Resolving]
  - Pulmonary artery thrombosis [Recovered/Resolved]
  - Dizziness [Recovering/Resolving]
  - Hypomagnesaemia [Unknown]

NARRATIVE: CASE EVENT DATE: 201209
